FAERS Safety Report 26021235 (Version 1)
Quarter: 2025Q4

REPORT INFORMATION
  Report Type: Report from Study
  Country: US (occurrence: US)
  Receive Date: 20251110
  Receipt Date: 20251110
  Transmission Date: 20260119
  Serious: Yes (Death)
  Sender: OTSUKA
  Company Number: US-MMM-Otsuka-FB204ZUI

PATIENT
  Sex: Female

DRUGS (1)
  1. BREXPIPRAZOLE [Suspect]
     Active Substance: BREXPIPRAZOLE
     Indication: Product used for unknown indication
     Dosage: 0.5 MG

REACTIONS (1)
  - Death [Fatal]
